FAERS Safety Report 17536270 (Version 2)
Quarter: 2020Q2

REPORT INFORMATION
  Report Type: Spontaneous
  Country: US (occurrence: US)
  Receive Date: 20200313
  Receipt Date: 20200407
  Transmission Date: 20200713
  Serious: Yes (Hospitalization)
  Sender: FDA-Public Use
  Company Number: US-PFIZER INC-2020104791

PATIENT
  Age: 78 Year
  Sex: Female
  Weight: 87.54 kg

DRUGS (1)
  1. VYNDAQEL [Suspect]
     Active Substance: TAFAMIDIS MEGLUMINE
     Indication: AMYLOIDOSIS
     Dosage: 80 MG, DAILY (4 BY MOUTH EVERY DAY)
     Route: 048
     Dates: start: 2020

REACTIONS (7)
  - Vomiting [Recovered/Resolved]
  - Haemoglobin decreased [Recovered/Resolved]
  - Product use in unapproved indication [Unknown]
  - Nausea [Recovering/Resolving]
  - Lethargy [Recovering/Resolving]
  - Off label use [Unknown]
  - Polyp [Unknown]

NARRATIVE: CASE EVENT DATE: 2020
